FAERS Safety Report 5863649-5 (Version None)
Quarter: 2008Q3

REPORT INFORMATION
  Report Type: 
  Country: None (occurrence: None)
  Receive Date: 20080828
  Receipt Date: 20080816
  Transmission Date: 20090109
  Serious: Yes (Hospitalization, Other)
  Sender: FDA-Public Use
  Company Number: US-PFIZER INC-2008068748

PATIENT
  Sex: Male

DRUGS (2)
  1. CHANTIX [Suspect]
     Indication: SMOKING CESSATION THERAPY
     Dosage: FREQ:DAILY
     Dates: start: 20070701, end: 20071101
  2. LEXAPRO [Concomitant]
     Indication: DEPRESSION

REACTIONS (10)
  - ABNORMAL BEHAVIOUR [None]
  - BLINDNESS UNILATERAL [None]
  - CARDIAC DISORDER [None]
  - DIPLOPIA [None]
  - LUNG DISORDER [None]
  - NEGATIVE THOUGHTS [None]
  - NEUROLOGICAL SYMPTOM [None]
  - RESPIRATORY DISORDER [None]
  - SPEECH DISORDER [None]
  - SUICIDE ATTEMPT [None]
